FAERS Safety Report 8849152 (Version 1)
Quarter: 2012Q4

REPORT INFORMATION
  Report Type: Spontaneous
  Country: US (occurrence: None)
  Receive Date: 20121017
  Receipt Date: 20121017
  Transmission Date: 20130627
  Serious: Yes (Other)
  Sender: FDA-Public Use
  Company Number: None

PATIENT
  Age: 10 Year
  Sex: Male
  Weight: 39.92 kg

DRUGS (2)
  1. CHLORAPREP [Suspect]
     Indication: SURGERY
     Dates: start: 20120429, end: 20120429
  2. CHLORAPREP [Suspect]
     Indication: SURGERY
     Dates: start: 20121012, end: 20121012

REACTIONS (3)
  - Hypersensitivity [None]
  - Rash [None]
  - Pruritus [None]
